FAERS Safety Report 19105875 (Version 2)
Quarter: 2021Q2

REPORT INFORMATION
  Report Type: Spontaneous
  Country: US (occurrence: US)
  Receive Date: 20210407
  Receipt Date: 20210423
  Transmission Date: 20210717
  Serious: Yes (Other)
  Sender: FDA-Public Use
  Company Number: US-BAUSCH-BL-2021-011496

PATIENT
  Age: 31 Year
  Sex: Female

DRUGS (10)
  1. PREDNISONE. [Suspect]
     Active Substance: PREDNISONE
     Indication: VULVAL DISORDER
  2. TRIAMCINOLONE [Suspect]
     Active Substance: TRIAMCINOLONE
     Indication: VULVAL DISORDER
  3. TRIAMCINOLONE [Suspect]
     Active Substance: TRIAMCINOLONE
     Indication: CROHN^S DISEASE
     Route: 026
  4. PIMECROLIMUS. [Suspect]
     Active Substance: PIMECROLIMUS
     Indication: CROHN^S DISEASE
     Route: 061
  5. PIMECROLIMUS. [Suspect]
     Active Substance: PIMECROLIMUS
     Indication: VULVAL DISORDER
  6. METRONIDAZOLE. [Suspect]
     Active Substance: METRONIDAZOLE
     Indication: VULVAL DISORDER
  7. CLOBETASOL [Suspect]
     Active Substance: CLOBETASOL
     Indication: CROHN^S DISEASE
     Route: 065
  8. METRONIDAZOLE. [Suspect]
     Active Substance: METRONIDAZOLE
     Indication: CROHN^S DISEASE
     Route: 065
  9. PREDNISONE. [Suspect]
     Active Substance: PREDNISONE
     Indication: CROHN^S DISEASE
     Route: 048
  10. CLOBETASOL [Suspect]
     Active Substance: CLOBETASOL
     Indication: VULVAL DISORDER

REACTIONS (3)
  - Therapy non-responder [Unknown]
  - Staphylococcal infection [Recovering/Resolving]
  - Beta haemolytic streptococcal infection [Recovering/Resolving]
